FAERS Safety Report 15060614 (Version 1)
Quarter: 2018Q2

REPORT INFORMATION
  Report Type: Spontaneous
  Country: FR (occurrence: FR)
  Receive Date: 20180625
  Receipt Date: 20180625
  Transmission Date: 20180711
  Serious: Yes (Death, Other)
  Sender: FDA-Public Use
  Company Number: FR-MYLANLABS-2018M1036271

PATIENT
  Age: 86 Year
  Sex: Female

DRUGS (7)
  1. TICAGRELOR. [Suspect]
     Active Substance: TICAGRELOR
     Dosage: 180 MG, (IN THE MORNING OF THE PROCEDURE)
     Route: 048
  2. ACETYLSALICYLIC ACID [Suspect]
     Active Substance: ASPIRIN
     Indication: PROPHYLAXIS
     Dosage: 160 MG, QD (DAILY)
     Route: 042
  3. ACETYLSALICYLIC ACID [Suspect]
     Active Substance: ASPIRIN
     Indication: ANTIPLATELET THERAPY
     Dosage: 250 MG STARTED DURING THE INTERVENTION
     Route: 042
  4. TICAGRELOR. [Suspect]
     Active Substance: TICAGRELOR
     Indication: PROPHYLAXIS
     Dosage: 180 MG, QD (90 MG, 2X/DAY)
     Route: 048
  5. TICAGRELOR. [Suspect]
     Active Substance: TICAGRELOR
     Dosage: 90 MG, (IN THE EVENING AFTER THE INTERVENTION)
     Route: 048
  6. HEPARIN [Suspect]
     Active Substance: HEPARIN SODIUM
     Indication: PRODUCT USED FOR UNKNOWN INDICATION
     Dosage: 70 IU/KG, UNK (BOLUS)
     Route: 042
  7. TICAGRELOR. [Suspect]
     Active Substance: TICAGRELOR
     Indication: ANTIPLATELET THERAPY
     Dosage: 180 MG, (THE EVENING BEFORE INTERVENTION)
     Route: 048

REACTIONS (2)
  - Subdural haematoma [Fatal]
  - Haemorrhage intracranial [Fatal]
